FAERS Safety Report 15960836 (Version 2)
Quarter: 2019Q1

REPORT INFORMATION
  Report Type: Spontaneous
  Country: US (occurrence: US)
  Receive Date: 20190214
  Receipt Date: 20190218
  Transmission Date: 20190417
  Serious: No
  Sender: FDA-Public Use
  Company Number: US-PFIZER INC-2019065147

PATIENT
  Age: 58 Year
  Sex: Female

DRUGS (1)
  1. SOMAVERT [Suspect]
     Active Substance: PEGVISOMANT
     Dosage: 30 MG, DAILY
     Route: 058
     Dates: start: 20180318

REACTIONS (5)
  - Low density lipoprotein increased [Unknown]
  - Blood glucose increased [Unknown]
  - Weight increased [Unknown]
  - Insulin-like growth factor increased [Unknown]
  - Glycosylated haemoglobin increased [Unknown]
